FAERS Safety Report 7163012-3 (Version None)
Quarter: 2010Q4

REPORT INFORMATION
  Report Type: 
  Country: None (occurrence: None)
  Receive Date: 20101215
  Receipt Date: 20101206
  Transmission Date: 20110411
  Serious: Yes (Hospitalization)
  Sender: FDA-Public Use
  Company Number: US-JNJFOC-20101203114

PATIENT
  Age: 5 Year
  Sex: Female
  Weight: 14.52 kg

DRUGS (2)
  1. CHILDREN'S MOTRIN [Suspect]
  2. CHILDREN'S MOTRIN [Suspect]
     Indication: MULTIPLE ALLERGIES

REACTIONS (1)
  - GASTROINTESTINAL DISORDER [None]
